FAERS Safety Report 8307341-6 (Version None)
Quarter: 2012Q2

REPORT INFORMATION
  Report Type: 
  Country: None (occurrence: None)
  Receive Date: 20120424
  Receipt Date: 20120416
  Transmission Date: 20120825
  Serious: Yes (Other)
  Sender: FDA-Public Use
  Company Number: US-BAYER-2011-123884

PATIENT
  Age: 42 Year
  Sex: Female

DRUGS (7)
  1. ACETAMINOPHEN [Concomitant]
     Dosage: 325MG 1-2 TABLETS EVERY 4-6 HOURS AS NEEDED
     Route: 048
     Dates: start: 20071029
  2. YAZ [Suspect]
     Indication: DYSFUNCTIONAL UTERINE BLEEDING
     Dosage: UNK
     Route: 048
     Dates: start: 20070812, end: 20071110
  3. WELLBUTRIN SR [Concomitant]
     Dosage: 1 TABLET TWICE DAILY
     Route: 048
     Dates: start: 20071029
  4. MOTRIN [Concomitant]
     Dosage: UNK UNK, PRN
  5. ACETAMINOPHEN AND OXYCODONE HCL [Concomitant]
     Dosage: 5MG (INTERPRETED AS MILLIGRAMS)/325MG 1-2 TABLETS EVERY 4-6 HOURS AS NEEDED.
     Route: 048
     Dates: start: 20071029
  6. NITROFURANTOIN [Concomitant]
     Dosage: 100 MG, UNK
     Route: 048
     Dates: start: 20071029
  7. ZITHROMAX [Concomitant]
     Dosage: UNK UNK, PRN

REACTIONS (6)
  - ANXIETY [None]
  - GALLBLADDER DISORDER [None]
  - EMOTIONAL DISTRESS [None]
  - GENERAL PHYSICAL HEALTH DETERIORATION [None]
  - PAIN [None]
  - CHOLELITHIASIS [None]
